FAERS Safety Report 5274571-X (Version None)
Quarter: 2007Q1

REPORT INFORMATION
  Report Type: 
  Country: None (occurrence: None)
  Receive Date: 20070320
  Receipt Date: 20070313
  Transmission Date: 20070707
  Serious: Yes (Death)
  Sender: FDA-Public Use
  Company Number: 2007-00678

PATIENT
  Age: 81 Year
  Sex: Male

DRUGS (3)
  1. VELCADE [Suspect]
     Indication: PLASMACYTOMA
     Dosage: 1.80 MG, INTRAVENOUS
     Route: 042
     Dates: start: 20051021, end: 20051021
  2. VELCADE [Suspect]
     Indication: PLASMACYTOMA
     Dosage: 1.80 MG, INTRAVENOUS
     Route: 042
     Dates: start: 20061024
  3. DEXAMETHASONE [Concomitant]

REACTIONS (2)
  - MULTI-ORGAN FAILURE [None]
  - PNEUMONIA [None]
